FAERS Safety Report 8102584-9 (Version None)
Quarter: 2012Q1

REPORT INFORMATION
  Report Type: 
  Country: None (occurrence: None)
  Receive Date: 20120131
  Receipt Date: 20120131
  Transmission Date: 20120608
  Serious: Yes (Death, Hospitalization)
  Sender: FDA-Public Use
  Company Number: None

PATIENT
  Sex: Male
  Weight: 89.8 kg

DRUGS (2)
  1. ERBITUX [Suspect]
     Dosage: 4876 MG
  2. HYDROCHLOROTHIAZIDE [Concomitant]

REACTIONS (7)
  - SUPRAVENTRICULAR TACHYCARDIA [None]
  - HYPOPHAGIA [None]
  - DEEP VEIN THROMBOSIS [None]
  - RESPIRATORY FAILURE [None]
  - PULMONARY EMBOLISM [None]
  - ASTHENIA [None]
  - SUBDURAL HAEMATOMA [None]
